FAERS Safety Report 16696110 (Version 15)
Quarter: 2022Q1

REPORT INFORMATION
  Report Type: Spontaneous
  Country: PT (occurrence: PT)
  Receive Date: 20190813
  Receipt Date: 20220316
  Transmission Date: 20220424
  Serious: Yes (Life-Threatening, Hospitalization, Other)
  Sender: FDA-Public Use
  Company Number: PT-MEDINFARP-2019-07-2244

PATIENT
  Age: 17 Year
  Sex: Female

DRUGS (28)
  1. IBUPROFEN [Interacting]
     Active Substance: IBUPROFEN
     Indication: Product used for unknown indication
     Dosage: 1.5 GRAM, ONCE A DAY, SINGLE DOSE,TOTAL
     Route: 048
  2. ACETAMINOPHEN [Suspect]
     Active Substance: ACETAMINOPHEN
     Indication: Product used for unknown indication
     Dosage: UNK
     Route: 065
  3. PROPAFENONE [Interacting]
     Active Substance: PROPAFENONE
     Indication: Product used for unknown indication
     Dosage: 6 GRAM, ONCE A DAY, SINGLE DOSE,TOTAL
     Route: 048
  4. ATROPINE [Suspect]
     Active Substance: ATROPINE
     Indication: Life support
     Dosage: UNK
     Route: 065
  5. ATROPINE [Suspect]
     Active Substance: ATROPINE
     Indication: Cardio-respiratory arrest
  6. ATROPINE [Suspect]
     Active Substance: ATROPINE
     Indication: Cardiovascular disorder
  7. DOPAMINE [Suspect]
     Active Substance: DOPAMINE HYDROCHLORIDE
     Indication: Haemodynamic instability
     Dosage: 10 PG/KG/MIN
     Route: 065
  8. DOPAMINE [Suspect]
     Active Substance: DOPAMINE HYDROCHLORIDE
     Indication: Cardiovascular disorder
     Dosage: 7.5 MICROGRAM/KILOGRAM
     Route: 065
  9. DOPAMINE [Suspect]
     Active Substance: DOPAMINE HYDROCHLORIDE
     Indication: Cardiac arrest
  10. DOPAMINE [Suspect]
     Active Substance: DOPAMINE HYDROCHLORIDE
     Indication: Cardio-respiratory arrest
  11. EPINEPHRINE [Suspect]
     Active Substance: EPINEPHRINE
     Indication: Life support
     Dosage: 0.15-0.3 ?G/KG/MIN
     Route: 065
  12. EPINEPHRINE [Suspect]
     Active Substance: EPINEPHRINE
     Indication: Cardio-respiratory arrest
     Dosage: 0.6 MICROGRAM/KILOGRAM
     Route: 065
  13. SODIUM BICARBONATE [Suspect]
     Active Substance: SODIUM BICARBONATE
     Indication: Supportive care
     Dosage: 1 MILLIEQUIVALENT (1 MEQ/KG/H)
     Route: 065
  14. SODIUM BICARBONATE [Suspect]
     Active Substance: SODIUM BICARBONATE
     Indication: Metabolic acidosis
  15. SODIUM BICARBONATE [Suspect]
     Active Substance: SODIUM BICARBONATE
     Indication: Cardio-respiratory arrest
  16. CHARCOAL ACTIVATED [Concomitant]
     Active Substance: ACTIVATED CHARCOAL
     Indication: Product used for unknown indication
     Dosage: 50 GRAM
     Route: 065
  17. EPINEPHRINE BITARTRATE [Concomitant]
     Active Substance: EPINEPHRINE BITARTRATE
     Indication: Cardiovascular disorder
     Dosage: 0.15-0.3 PG/KG/MIN
     Route: 065
  18. EPINEPHRINE BITARTRATE [Concomitant]
     Active Substance: EPINEPHRINE BITARTRATE
     Indication: Cardiac arrest
     Dosage: 0.6 G/KG, Z (PER MIN)
     Route: 065
  19. EPINEPHRINE BITARTRATE [Concomitant]
     Active Substance: EPINEPHRINE BITARTRATE
     Indication: Cardio-respiratory arrest
  20. MIDAZOLAM [Concomitant]
     Active Substance: MIDAZOLAM
     Indication: Seizure
     Dosage: UNK
     Route: 065
  21. MIDAZOLAM [Concomitant]
     Active Substance: MIDAZOLAM
     Indication: Generalised tonic-clonic seizure
  22. MIDAZOLAM [Concomitant]
     Active Substance: MIDAZOLAM
     Indication: Partial seizures
  23. NOREPINEPHRINE [Concomitant]
     Active Substance: NOREPINEPHRINE
     Indication: Cardiovascular disorder
     Dosage: UNK
     Route: 065
  24. NOREPINEPHRINE [Concomitant]
     Active Substance: NOREPINEPHRINE
     Indication: Cardio-respiratory arrest
  25. PHENOBARBITAL [Concomitant]
     Active Substance: PHENOBARBITAL
     Indication: Seizure
     Dosage: UNK
     Route: 065
  26. PHENOBARBITAL [Concomitant]
     Active Substance: PHENOBARBITAL
     Indication: Generalised tonic-clonic seizure
  27. PHENYTOIN [Concomitant]
     Active Substance: PHENYTOIN
     Indication: Seizure
     Dosage: UNK
     Route: 065
  28. PHENYTOIN [Concomitant]
     Active Substance: PHENYTOIN
     Indication: Generalised tonic-clonic seizure

REACTIONS (36)
  - Cardiac arrest [Recovered/Resolved]
  - Generalised tonic-clonic seizure [Recovered/Resolved]
  - Bradycardia [Recovered/Resolved]
  - Sinus bradycardia [Recovered/Resolved]
  - Metabolic acidosis [Recovered/Resolved]
  - Coma [Recovered/Resolved]
  - Myocardial ischaemia [Recovered/Resolved]
  - Cardio-respiratory arrest [Recovered/Resolved]
  - Cardiogenic shock [Recovered/Resolved]
  - Coma scale abnormal [Recovered/Resolved]
  - Diastolic dysfunction [Recovered/Resolved]
  - Acute kidney injury [Recovered/Resolved]
  - Shock [Recovered/Resolved]
  - Ischaemic hepatitis [Recovered/Resolved]
  - Renal injury [Recovered/Resolved]
  - Alanine aminotransferase increased [Recovered/Resolved]
  - Partial seizures [Recovered/Resolved]
  - Seizure [Recovered/Resolved]
  - Haemodynamic instability [Recovered/Resolved]
  - Poor peripheral circulation [Recovered/Resolved]
  - Troponin I increased [Recovered/Resolved]
  - N-terminal prohormone brain natriuretic peptide [Recovered/Resolved]
  - Systolic dysfunction [Recovered/Resolved]
  - Drug interaction [Recovered/Resolved]
  - Therapy non-responder [Unknown]
  - Myocardial necrosis marker increased [Recovered/Resolved]
  - Cardiac assistance device user [Recovered/Resolved]
  - pH body fluid abnormal [Recovered/Resolved]
  - Haemodynamic rebound [Recovered/Resolved]
  - Enzyme induction [Unknown]
  - Cardiovascular disorder [Recovered/Resolved]
  - Cardiac failure [Recovered/Resolved]
  - Toxicity to various agents [Recovered/Resolved]
  - Intentional product misuse [Recovered/Resolved]
  - Overdose [Recovered/Resolved]
  - Intentional overdose [Recovered/Resolved]
